FAERS Safety Report 21920787 (Version 8)
Quarter: 2023Q2

REPORT INFORMATION
  Report Type: Spontaneous
  Country: US (occurrence: US)
  Receive Date: 20230127
  Receipt Date: 20230602
  Transmission Date: 20230721
  Serious: Yes (Hospitalization)
  Sender: FDA-Public Use
  Company Number: US-PFIZER INC-PV202300015516

PATIENT
  Age: 72 Year
  Sex: Female

DRUGS (2)
  1. IBRANCE [Suspect]
     Active Substance: PALBOCICLIB
     Indication: Breast cancer female
     Dosage: 100 MG, ONCE DAILY FOR 21 DAYS IN 28-DAY CYCLE
  2. IBRANCE [Suspect]
     Active Substance: PALBOCICLIB
     Indication: Bone cancer
     Dosage: 75 MG, CYCLIC (EVERYDAY FOR 21 DAYS)
     Dates: start: 202302

REACTIONS (11)
  - Somnolence [Unknown]
  - Platelet count decreased [Not Recovered/Not Resolved]
  - Depression [Unknown]
  - Hypoacusis [Unknown]
  - Abdominal pain upper [Unknown]
  - Emotional disorder [Unknown]
  - Illness [Unknown]
  - Confusional state [Unknown]
  - Memory impairment [Unknown]
  - Arthritis [Unknown]
  - Fatigue [Unknown]

NARRATIVE: CASE EVENT DATE: 20230201
